FAERS Safety Report 17208408 (Version 1)
Quarter: 2019Q4

REPORT INFORMATION
  Report Type: Report from Study
  Country: None (occurrence: US)
  Receive Date: 20191227
  Receipt Date: 20191227
  Transmission Date: 20200122
  Serious: Yes (Other)
  Sender: FDA-Public Use
  Company Number: US-ABBVIE-19K-163-3131180-00

PATIENT
  Age: 66 Year
  Sex: Female

DRUGS (5)
  1. IMBRUVICA [Suspect]
     Active Substance: IBRUTINIB
     Dosage: UNK
     Route: 048
  2. METOPROLOL SUCCINATE ER [Concomitant]
     Active Substance: METOPROLOL SUCCINATE
     Indication: PRODUCT USED FOR UNKNOWN INDICATION
     Dosage: UNK
  3. IMBRUVICA [Suspect]
     Active Substance: IBRUTINIB
     Dosage: 420 MG, QD
     Route: 048
     Dates: start: 20190202
  4. MAGNESIUM [Concomitant]
     Active Substance: MAGNESIUM
     Indication: PRODUCT USED FOR UNKNOWN INDICATION
     Dosage: UNK
  5. IMBRUVICA [Suspect]
     Active Substance: IBRUTINIB
     Indication: LYMPHOCYTIC LEUKAEMIA
     Dosage: 420 MG, QD
     Route: 048
     Dates: start: 20190102

REACTIONS (27)
  - Pain [Unknown]
  - Bone pain [Unknown]
  - Back pain [Unknown]
  - Nausea [Unknown]
  - Pain in extremity [Unknown]
  - Chills [Unknown]
  - Sciatica [Unknown]
  - Arthralgia [Unknown]
  - Knee arthroplasty [Unknown]
  - Headache [Unknown]
  - Fatigue [Not Recovered/Not Resolved]
  - Musculoskeletal pain [Unknown]
  - Arthritis [Unknown]
  - Abdominal distension [Unknown]
  - Alopecia [Unknown]
  - Injection site pain [Recovered/Resolved]
  - Abdominal discomfort [Unknown]
  - Temporomandibular joint syndrome [Unknown]
  - Gastric dilatation [Unknown]
  - Tooth fracture [Unknown]
  - Stomatitis [Unknown]
  - Asthenia [Unknown]
  - Weight increased [Unknown]
  - Oropharyngeal discomfort [Recovering/Resolving]
  - Diarrhoea [Not Recovered/Not Resolved]
  - Gastrooesophageal reflux disease [Unknown]
  - Vomiting [Unknown]

NARRATIVE: CASE EVENT DATE: 201901
